FAERS Safety Report 5076303-7 (Version None)
Quarter: 2006Q3

REPORT INFORMATION
  Report Type: 
  Country: None (occurrence: None)
  Receive Date: 20060807
  Receipt Date: 20060725
  Transmission Date: 20061208
  Serious: Yes (Death)
  Sender: FDA-Public Use
  Company Number: 2005BH000697

PATIENT
  Age: 67 Year
  Sex: Male

DRUGS (2)
  1. FENTANYL CITRATE [Suspect]
     Indication: CANCER PAIN
     Dosage: IV
     Route: 042
  2. HALOPERIDOL [Suspect]
     Indication: DRUG USE FOR UNKNOWN INDICATION
     Dosage: IV
     Route: 042

REACTIONS (5)
  - ACUTE RESPIRATORY FAILURE [None]
  - HYPOMAGNESAEMIA [None]
  - HYPOPHOSPHATAEMIA [None]
  - NEUROLEPTIC MALIGNANT SYNDROME [None]
  - PNEUMONIA ASPIRATION [None]
